FAERS Safety Report 18641672 (Version 1)
Quarter: 2020Q4

REPORT INFORMATION
  Report Type: Spontaneous
  Country: US (occurrence: US)
  Receive Date: 20201221
  Receipt Date: 20201221
  Transmission Date: 20210114
  Serious: No
  Sender: FDA-Public Use
  Company Number: US-CELLTRION INC.-2020US026596

PATIENT

DRUGS (1)
  1. TRUXIMA [Suspect]
     Active Substance: RITUXIMAB-ABBS
     Indication: B-CELL LYMPHOMA
     Dosage: 700 MG, EVERY WEEK, FOR 4 WEEKS
     Dates: start: 20200717

REACTIONS (2)
  - Neuralgia [Not Recovered/Not Resolved]
  - Product dose omission issue [Unknown]
